FAERS Safety Report 6584798-2 (Version None)
Quarter: 2010Q1

REPORT INFORMATION
  Report Type: 
  Country: None (occurrence: None)
  Receive Date: 20100204
  Receipt Date: 20100128
  Transmission Date: 20100710
  Serious: Yes (Hospitalization)
  Sender: FDA-Public Use
  Company Number: DSA_33759_2009

PATIENT
  Sex: Male

DRUGS (7)
  1. XENAZINE [Suspect]
     Indication: HUNTINGTON'S CHOREA
     Dosage: 12.5 MG QD ORAL
     Route: 048
     Dates: start: 20090101
  2. DIOVAN [Concomitant]
  3. UROXATRAL [Concomitant]
  4. SANCTURA [Concomitant]
  5. FLOMAX /01280302/ [Concomitant]
  6. ASPIRIN [Concomitant]
  7. LIPITOR [Concomitant]

REACTIONS (10)
  - ABASIA [None]
  - DECREASED INTEREST [None]
  - DEPRESSION [None]
  - DROOLING [None]
  - EATING DISORDER [None]
  - HYPERSOMNIA [None]
  - LACK OF SPONTANEOUS SPEECH [None]
  - LETHARGY [None]
  - LOSS OF CONSCIOUSNESS [None]
  - SOMNOLENCE [None]
